FAERS Safety Report 4654905-7 (Version None)
Quarter: 2005Q2

REPORT INFORMATION
  Report Type: 
  Country: None (occurrence: None)
  Receive Date: 20050506
  Receipt Date: 20040406
  Transmission Date: 20051028
  Serious: No
  Sender: FDA-Public Use
  Company Number: US-GLAXOSMITHKLINE-A0505973A

PATIENT
  Sex: Female

DRUGS (3)
  1. AMOXICILLIN [Suspect]
     Indication: SKIN INFECTION
     Dosage: 500MG THREE TIMES PER DAY
     Route: 048
  2. VITAMIN [Concomitant]
  3. INDERAL [Concomitant]

REACTIONS (3)
  - DRUG ADMINISTRATION ERROR [None]
  - DYSGEUSIA [None]
  - GLOSSITIS [None]
